FAERS Safety Report 6986151-6 (Version None)
Quarter: 2010Q3

REPORT INFORMATION
  Report Type: 
  Country: None (occurrence: None)
  Receive Date: 20100915
  Receipt Date: 20090602
  Transmission Date: 20110219
  Serious: No
  Sender: FDA-Public Use
  Company Number: US-WYE-H09610609

PATIENT
  Age: 75 Year
  Sex: Female

DRUGS (2)
  1. PRISTIQ [Suspect]
     Indication: FEELING HOT
     Route: 048
     Dates: start: 20090519, end: 20090527
  2. LEVODOPA [Concomitant]

REACTIONS (5)
  - BLISTER [None]
  - CONDITION AGGRAVATED [None]
  - DRUG WITHDRAWAL SYNDROME [None]
  - FEELING HOT [None]
  - LIP SWELLING [None]
